FAERS Safety Report 25270821 (Version 1)
Quarter: 2025Q2

REPORT INFORMATION
  Report Type: Report from Study
  Country: CA (occurrence: CA)
  Receive Date: 20250505
  Receipt Date: 20250505
  Transmission Date: 20250717
  Serious: Yes (Hospitalization)
  Sender: ABBVIE
  Company Number: CA-ABBVIE-6264121

PATIENT
  Age: 42 Year
  Sex: Male

DRUGS (2)
  1. SKYRIZI [Suspect]
     Active Substance: RISANKIZUMAB-RZAA
     Indication: Crohn^s disease
     Route: 058
  2. MAGNESIUM [Concomitant]
     Active Substance: MAGNESIUM
     Indication: Product used for unknown indication

REACTIONS (21)
  - Malaise [Unknown]
  - Myalgia [Unknown]
  - Arthralgia [Unknown]
  - Fatigue [Unknown]
  - Brain fog [Unknown]
  - Restlessness [Unknown]
  - Weight increased [Unknown]
  - Abdominal discomfort [Unknown]
  - Impaired quality of life [Unknown]
  - Blood magnesium decreased [Unknown]
  - Frequent bowel movements [Unknown]
  - Leukocytosis [Unknown]
  - Gastrointestinal anastomotic leak [Unknown]
  - Small intestinal anastomosis [Unknown]
  - Abdominal abscess [Unknown]
  - Diastasis recti abdominis [Unknown]
  - Hydronephrosis [Unknown]
  - Intussusception [Unknown]
  - Incisional hernia [Unknown]
  - Gastrointestinal inflammation [Unknown]
  - Urinary tract disorder [Unknown]

NARRATIVE: CASE EVENT DATE: 20230912
